FAERS Safety Report 4741945-2 (Version None)
Quarter: 2005Q3

REPORT INFORMATION
  Report Type: 
  Country: None (occurrence: None)
  Receive Date: 20050801
  Receipt Date: 20050616
  Transmission Date: 20060218
  Serious: No
  Sender: FDA-Public Use
  Company Number: 2005PV000053

PATIENT
  Age: 54 Year
  Sex: Female

DRUGS (1)
  1. BYETTA [Suspect]
     Dosage: 5 UG;UNKNOWN;SC
     Route: 058
     Dates: start: 20050616

REACTIONS (1)
  - INJECTION SITE PAIN [None]
